FAERS Safety Report 9392826 (Version 3)
Quarter: 2013Q3

REPORT INFORMATION
  Report Type: Spontaneous
  Country: DE (occurrence: DE)
  Receive Date: 20130710
  Receipt Date: 20130822
  Transmission Date: 20140515
  Serious: Yes (Other)
  Sender: FDA-Public Use
  Company Number: DE-AMGEN-DEUSP2013047785

PATIENT
  Age: 63 Year
  Sex: Male

DRUGS (5)
  1. XGEVA [Suspect]
     Indication: METASTASES TO BONE
     Dosage: 120 MG, Q4WK
     Route: 058
     Dates: start: 201206, end: 201307
  2. ZYTIGA [Concomitant]
     Indication: PROSTATE CANCER
     Dosage: 1000 MG, QD
     Route: 048
     Dates: start: 201305, end: 201308
  3. FIRMAGON                           /01764801/ [Concomitant]
     Indication: PROSTATE CANCER
     Dosage: 80 MG, Q4WK
     Route: 058
     Dates: start: 201204, end: 201308
  4. PREDNISOLON                        /00016201/ [Concomitant]
     Indication: PROSTATE CANCER
     Dosage: 5 MG, BID
     Route: 048
     Dates: start: 201305, end: 201308
  5. SANDOCAL                           /00751528/ [Concomitant]
     Indication: PROSTATE CANCER
     Dosage: 1 UNIT, BID
     Route: 048
     Dates: start: 201204, end: 201308

REACTIONS (2)
  - Osteonecrosis of jaw [Recovering/Resolving]
  - Tooth disorder [Recovering/Resolving]
